FAERS Safety Report 19178594 (Version 1)
Quarter: 2021Q2

REPORT INFORMATION
  Report Type: Spontaneous
  Country: GB (occurrence: GB)
  Receive Date: 20210426
  Receipt Date: 20210426
  Transmission Date: 20210717
  Serious: Yes (Other)
  Sender: FDA-Public Use
  Company Number: GB-TEVA-2021-GB-1904336

PATIENT
  Age: 8 Decade
  Sex: Female

DRUGS (12)
  1. BISOPROLOL [Suspect]
     Active Substance: BISOPROLOL
     Indication: BLOOD PRESSURE INCREASED
     Route: 065
  2. LENVATINIB [Suspect]
     Active Substance: LENVATINIB
     Dosage: 14 MILLIGRAM DAILY;
     Route: 048
     Dates: start: 201801
  3. DEXAMETHASONE. [Concomitant]
     Active Substance: DEXAMETHASONE
     Indication: PRODUCT USED FOR UNKNOWN INDICATION
     Dosage: 16 MILLIGRAM DAILY;
     Route: 065
     Dates: start: 2017
  4. DEXAMETHASONE. [Concomitant]
     Active Substance: DEXAMETHASONE
     Dosage: 8 MILLIGRAM DAILY;
     Route: 065
  5. LEVOTHYROXINE. [Concomitant]
     Active Substance: LEVOTHYROXINE
     Indication: THYROID CANCER METASTATIC
     Route: 065
  6. LENVATINIB [Suspect]
     Active Substance: LENVATINIB
     Dosage: 10 MILLIGRAM DAILY;
     Route: 048
  7. AMLODIPINE [Suspect]
     Active Substance: AMLODIPINE BESYLATE
     Indication: BLOOD PRESSURE INCREASED
     Route: 065
  8. LENVATINIB [Suspect]
     Active Substance: LENVATINIB
     Indication: THYROID CANCER METASTATIC
     Dosage: 24 MILLIGRAM DAILY;
     Route: 048
     Dates: start: 201708
  9. LENVATINIB [Suspect]
     Active Substance: LENVATINIB
     Dosage: 20 MILLIGRAM DAILY;
     Route: 048
  10. AMLODIPINE [Suspect]
     Active Substance: AMLODIPINE BESYLATE
     Indication: BLOOD PRESSURE INCREASED
     Route: 065
     Dates: start: 2017
  11. LENVATINIB [Suspect]
     Active Substance: LENVATINIB
     Dosage: 10 MILLIGRAM DAILY;
     Route: 048
     Dates: start: 2018
  12. DEXAMETHASONE. [Concomitant]
     Active Substance: DEXAMETHASONE
     Dosage: 4 MILLIGRAM DAILY;
     Route: 065

REACTIONS (7)
  - Oedema peripheral [Recovering/Resolving]
  - Metabolic disorder [Recovering/Resolving]
  - Quality of life decreased [Recovering/Resolving]
  - Eastern Cooperative Oncology Group performance status worsened [Recovering/Resolving]
  - Thrombocytopenia [Recovering/Resolving]
  - Rash [Unknown]
  - Blood pressure increased [Recovering/Resolving]

NARRATIVE: CASE EVENT DATE: 2017
